FAERS Safety Report 13924317 (Version 3)
Quarter: 2017Q4

REPORT INFORMATION
  Report Type: Spontaneous
  Country: US (occurrence: US)
  Receive Date: 20170831
  Receipt Date: 20171101
  Transmission Date: 20180320
  Serious: Yes (Hospitalization, Other)
  Sender: FDA-Public Use
  Company Number: US-PHARMING GROUP N.V.-PHAUS2017000141

PATIENT

DRUGS (4)
  1. RUCONEST [Suspect]
     Active Substance: HUMAN C1-ESTERASE INHIBITOR
     Dosage: 2700 IU, TWICE WEEKLY
     Route: 042
     Dates: start: 201708, end: 2017
  2. RUCONEST [Suspect]
     Active Substance: HUMAN C1-ESTERASE INHIBITOR
     Indication: PROPHYLAXIS
     Dosage: 2100 IU, SINGLE
     Route: 042
     Dates: start: 20170823, end: 20170823
  3. RUCONEST [Suspect]
     Active Substance: HUMAN C1-ESTERASE INHIBITOR
     Indication: HEREDITARY ANGIOEDEMA
     Dosage: 2100 IU, AS NEEDED
     Route: 042
     Dates: start: 2016, end: 201708
  4. RUCONEST [Suspect]
     Active Substance: HUMAN C1-ESTERASE INHIBITOR
     Dosage: 2600 IU, ONCE WEEKLY
     Route: 042
     Dates: start: 2017

REACTIONS (6)
  - Hyperemesis gravidarum [Unknown]
  - Product use in unapproved indication [Unknown]
  - Exposure during pregnancy [Not Recovered/Not Resolved]
  - Hereditary angioedema [Recovered/Resolved]
  - Abdominal pain [Recovered/Resolved]
  - Abortion spontaneous [Unknown]

NARRATIVE: CASE EVENT DATE: 2017
